FAERS Safety Report 15557149 (Version 1)
Quarter: 2018Q4

REPORT INFORMATION
  Report Type: Spontaneous
  Country: NZ (occurrence: NZ)
  Receive Date: 20181026
  Receipt Date: 20181026
  Transmission Date: 20190205
  Serious: Yes (Other)
  Sender: FDA-Public Use
  Company Number: NZ-009507513-1810NZL008588

PATIENT
  Age: 33 Year
  Sex: Female

DRUGS (1)
  1. CELESTONE CHRONODOSE [Suspect]
     Active Substance: BETAMETHASONE ACETATE\BETAMETHASONE SODIUM PHOSPHATE
     Indication: MENINGOCOCCAL INFECTION
     Dosage: 11.4 MILLIGRAM, ONCE
     Route: 030
     Dates: start: 20160114, end: 20160114

REACTIONS (1)
  - Uterine rupture [Unknown]

NARRATIVE: CASE EVENT DATE: 20160115
